FAERS Safety Report 20419639 (Version 1)
Quarter: 2022Q1

REPORT INFORMATION
  Report Type: Spontaneous
  Country: US (occurrence: US)
  Receive Date: 20220203
  Receipt Date: 20220203
  Transmission Date: 20220423
  Serious: Yes (Other)
  Sender: FDA-Public Use
  Company Number: US-JNJFOC-20220153098

PATIENT
  Age: 84 Year
  Sex: Female

DRUGS (1)
  1. XARELTO [Suspect]
     Active Substance: RIVAROXABAN
     Indication: Product used for unknown indication
     Dosage: CASE NUMBER: 02910059
     Route: 048

REACTIONS (2)
  - Post procedural haemorrhage [Unknown]
  - Biopsy [Unknown]

NARRATIVE: CASE EVENT DATE: 20220120
